FAERS Safety Report 24978384 (Version 1)
Quarter: 2025Q1

REPORT INFORMATION
  Report Type: Report from Study
  Country: US (occurrence: US)
  Receive Date: 20250217
  Receipt Date: 20250217
  Transmission Date: 20250409
  Serious: Yes (Other)
  Sender: ABBVIE
  Company Number: US-ABBVIE-5846347

PATIENT
  Age: 66 Year
  Sex: Male
  Weight: 96 kg

DRUGS (4)
  1. IMBRUVICA [Suspect]
     Active Substance: IBRUTINIB
     Indication: B-cell small lymphocytic lymphoma
     Dosage: FORM STRENGTH: 420 MILLIGRAM
     Route: 048
     Dates: start: 2019, end: 20240711
  2. IMBRUVICA [Suspect]
     Active Substance: IBRUTINIB
     Indication: B-cell small lymphocytic lymphoma
     Dosage: FORM STRENGTH: 420 MILLIGRAM
     Route: 048
     Dates: start: 20240713, end: 20240716
  3. CLARITIN [Concomitant]
     Active Substance: LORATADINE
     Indication: Product used for unknown indication
  4. METOPROLOL SUCCINATE [Concomitant]
     Active Substance: METOPROLOL SUCCINATE
     Indication: Heart rate increased

REACTIONS (12)
  - Ventricular tachycardia [Recovering/Resolving]
  - Palpitations [Recovered/Resolved]
  - Hypertension [Recovering/Resolving]
  - Anxiety [Unknown]
  - Chest pain [Recovering/Resolving]
  - Palpitations [Recovering/Resolving]
  - Chest pain [Unknown]
  - Supraventricular tachycardia [Recovering/Resolving]
  - Angina pectoris [Recovering/Resolving]
  - Myalgia [Unknown]
  - Palpitations [Unknown]
  - Palpitations [Unknown]

NARRATIVE: CASE EVENT DATE: 20240601
